FAERS Safety Report 6262880-7 (Version None)
Quarter: 2009Q3

REPORT INFORMATION
  Report Type: 
  Country: None (occurrence: None)
  Receive Date: 20090708
  Receipt Date: 20090622
  Transmission Date: 20100115
  Serious: Yes (Other)
  Sender: FDA-Public Use
  Company Number: 2009BI019754

PATIENT
  Age: 43 Year

DRUGS (3)
  1. ZEVALIN [Suspect]
     Indication: NON-HODGKIN'S LYMPHOMA
  2. CYCLOSPORINE [Concomitant]
  3. FLUDARABINE PHOSPHATE [Concomitant]

REACTIONS (4)
  - CHRONIC GRAFT VERSUS HOST DISEASE [None]
  - DIARRHOEA [None]
  - GASTROINTESTINAL DISORDER [None]
  - URINARY TRACT OBSTRUCTION [None]
